FAERS Safety Report 7148216-8 (Version None)
Quarter: 2010Q4

REPORT INFORMATION
  Report Type: 
  Country: None (occurrence: None)
  Receive Date: 20101209
  Receipt Date: 20101126
  Transmission Date: 20110411
  Serious: Yes (Hospitalization)
  Sender: FDA-Public Use
  Company Number: PHHY2010FR54017

PATIENT
  Sex: Male
  Weight: 68 kg

DRUGS (11)
  1. ZOMETA [Suspect]
     Indication: MULTIPLE MYELOMA
     Dosage: 4 MG
     Route: 042
     Dates: start: 20100625
  2. THALIDOMIDE [Suspect]
     Indication: MULTIPLE MYELOMA
     Dosage: 100 MG, EVERY 28 DAYS
     Route: 048
     Dates: start: 20100625
  3. BACTRIM [Suspect]
     Indication: INFECTION PROPHYLAXIS
     Dosage: 3 DF, 3 IN 1 D
     Route: 048
     Dates: start: 20100625
  4. MYOLASTAN [Suspect]
  5. OMEPRAZOLE [Suspect]
  6. ALLOPURINOL [Suspect]
  7. VELCADE [Concomitant]
     Indication: MULTIPLE MYELOMA
     Dosage: 1MG PER M2
     Route: 042
     Dates: start: 20100625
  8. ASPEGIC 1000 [Concomitant]
     Indication: MULTIPLE MYELOMA
     Dosage: 100 MG, EVERY 28 DAYS
     Route: 048
     Dates: start: 20100625
  9. ORACILLIN [Concomitant]
     Indication: INFECTION PROPHYLAXIS
     Dosage: 1 IU
     Route: 048
     Dates: start: 20100625
  10. VALACYCLOVIR HYDROCHLORIDE [Concomitant]
     Indication: INFECTION PROPHYLAXIS
     Dosage: 1000 MG, 2 IN 1 D
     Route: 048
  11. ANTIBIOTICS [Concomitant]

REACTIONS (4)
  - DERMATITIS EXFOLIATIVE [None]
  - EPIDERMOLYSIS BULLOSA [None]
  - OEDEMA PERIPHERAL [None]
  - SKIN EXFOLIATION [None]
